FAERS Safety Report 4691358-7 (Version None)
Quarter: 2005Q2

REPORT INFORMATION
  Report Type: 
  Country: None (occurrence: None)
  Receive Date: 20050615
  Receipt Date: 20050314
  Transmission Date: 20051028
  Serious: Yes (Hospitalization)
  Sender: FDA-Public Use
  Company Number: US-MERCK-0503USA02915

PATIENT
  Age: 32 Year
  Sex: Female
  Weight: 91 kg

DRUGS (2)
  1. VIOXX [Suspect]
     Indication: PAIN IN EXTREMITY
     Route: 048
     Dates: start: 20020101, end: 20030101
  2. LIPITOR [Concomitant]
     Route: 065

REACTIONS (8)
  - ABDOMINAL PAIN UPPER [None]
  - ANHEDONIA [None]
  - ANXIETY [None]
  - CORONARY ARTERY OCCLUSION [None]
  - EMOTIONAL DISTRESS [None]
  - JOINT INJURY [None]
  - MYOCARDIAL INFARCTION [None]
  - OEDEMA PERIPHERAL [None]
